FAERS Safety Report 11749135 (Version 2)
Quarter: 2015Q4

REPORT INFORMATION
  Report Type: Report from Study
  Country: IT (occurrence: IT)
  Receive Date: 20151118
  Receipt Date: 20151118
  Transmission Date: 20160304
  Serious: Yes (Other)
  Sender: FDA-Public Use
  Company Number: IT-ACCORD-035451

PATIENT
  Age: 18 Year
  Sex: Female

DRUGS (4)
  1. CISPLATIN. [Suspect]
     Active Substance: CISPLATIN
     Indication: OSTEOSARCOMA
  2. IFOSFAMIDE. [Suspect]
     Active Substance: IFOSFAMIDE
     Indication: OSTEOSARCOMA
  3. METHOTREXATE [Suspect]
     Active Substance: METHOTREXATE
     Indication: OSTEOSARCOMA
  4. DOXORUBICIN [Suspect]
     Active Substance: DOXORUBICIN
     Indication: OSTEOSARCOMA

REACTIONS (2)
  - Salivary gland neoplasm [Recovered/Resolved]
  - Off label use [Unknown]
